FAERS Safety Report 7590761-5 (Version None)
Quarter: 2011Q3

REPORT INFORMATION
  Report Type: 
  Country: None (occurrence: None)
  Receive Date: 20110705
  Receipt Date: 20110621
  Transmission Date: 20111222
  Serious: Yes (Hospitalization, Other)
  Sender: FDA-Public Use
  Company Number: PHHY2011JP40626

PATIENT
  Sex: Male

DRUGS (6)
  1. SOLU-MEDROL [Concomitant]
     Indication: FOCAL SEGMENTAL GLOMERULOSCLEROSIS
     Dosage: 450 MG
     Route: 042
     Dates: start: 20091026, end: 20100519
  2. LASIX [Concomitant]
     Dosage: 240 MG
     Route: 042
     Dates: start: 20091018, end: 20100106
  3. NEORAL [Suspect]
     Indication: NEPHROTIC SYNDROME
     Dosage: 45 MG, BID
     Route: 048
     Dates: start: 20091023, end: 20091101
  4. PREDNISOLONE [Concomitant]
     Dosage: 12.5 MG
     Route: 048
     Dates: start: 20090918, end: 20110202
  5. NORVASC [Concomitant]
     Dosage: 1 MG
     Dates: start: 20091103, end: 20100126
  6. NEORAL [Suspect]
     Dosage: 45 MG, BID
     Route: 048
     Dates: start: 20091101

REACTIONS (10)
  - EYELID OEDEMA [None]
  - WEIGHT INCREASED [None]
  - URINE OUTPUT DECREASED [None]
  - OXYGEN SATURATION DECREASED [None]
  - NEPHROTIC SYNDROME [None]
  - POSTERIOR REVERSIBLE ENCEPHALOPATHY SYNDROME [None]
  - RENAL FAILURE [None]
  - FOCAL SEGMENTAL GLOMERULOSCLEROSIS [None]
  - CLONIC CONVULSION [None]
  - SEPSIS [None]
